FAERS Safety Report 20709139 (Version 2)
Quarter: 2022Q2

REPORT INFORMATION
  Report Type: Report from Study
  Country: CL (occurrence: CL)
  Receive Date: 20220414
  Receipt Date: 20220420
  Transmission Date: 20220721
  Serious: Yes (Other)
  Sender: FDA-Public Use
  Company Number: CL-JNJFOC-20211108122

PATIENT
  Age: 69 Year
  Sex: Female

DRUGS (1)
  1. SIMPONI [Suspect]
     Active Substance: GOLIMUMAB
     Indication: Ankylosing spondylitis
     Route: 042
     Dates: start: 20180101

REACTIONS (9)
  - Arrhythmia [Unknown]
  - Fatigue [Unknown]
  - Therapy non-responder [Unknown]
  - Asthma [Unknown]
  - Pain [Unknown]
  - Vitamin D deficiency [Unknown]
  - Treatment noncompliance [Unknown]
  - Hypersensitivity [Not Recovered/Not Resolved]
  - Nasopharyngitis [Unknown]

NARRATIVE: CASE EVENT DATE: 20210301
